FAERS Safety Report 11695569 (Version 2)
Quarter: 2015Q4

REPORT INFORMATION
  Report Type: Report from Study
  Country: US (occurrence: US)
  Receive Date: 20151104
  Receipt Date: 20151104
  Transmission Date: 20160304
  Serious: Yes (Other)
  Sender: FDA-Public Use
  Company Number: US-ASTRAZENECA-2015SF03190

PATIENT
  Age: 28220 Day
  Sex: Female
  Weight: 52.2 kg

DRUGS (1)
  1. CRESTOR [Suspect]
     Active Substance: ROSUVASTATIN CALCIUM
     Indication: BLOOD CHOLESTEROL INCREASED
     Route: 048
     Dates: start: 2012

REACTIONS (2)
  - Humerus fracture [Recovered/Resolved]
  - Accident [Unknown]

NARRATIVE: CASE EVENT DATE: 20140913
